FAERS Safety Report 17166419 (Version 1)
Quarter: 2019Q4

REPORT INFORMATION
  Report Type: Spontaneous
  Country: CN (occurrence: CN)
  Receive Date: 20191217
  Receipt Date: 20191217
  Transmission Date: 20200122
  Serious: Yes (Hospitalization, Other)
  Sender: FDA-Public Use
  Company Number: CN-ALLERGAN-1951646US

PATIENT
  Sex: Male

DRUGS (2)
  1. HYDROCHLOROTHIAZIDE. [Concomitant]
     Active Substance: HYDROCHLOROTHIAZIDE
     Indication: PRODUCT USED FOR UNKNOWN INDICATION
     Dosage: 12.5 MG, QD, FOR THE LAST YEAR
  2. TIMOLOL UNK [Suspect]
     Active Substance: TIMOLOL
     Indication: GLAUCOMA
     Dosage: 0.5% TWICE DAILY FOR 13 YEARS
     Route: 047

REACTIONS (1)
  - Atrioventricular block complete [Recovered/Resolved]
